FAERS Safety Report 14632536 (Version 1)
Quarter: 2018Q1

REPORT INFORMATION
  Report Type: Spontaneous
  Country: US (occurrence: US)
  Receive Date: 20180313
  Receipt Date: 20180313
  Transmission Date: 20180509
  Serious: No
  Sender: FDA-Public Use
  Company Number: US-ROCHE-2036856

PATIENT
  Age: 63 Year
  Sex: Female
  Weight: 54.93 kg

DRUGS (4)
  1. L-GLUTAMINE [Concomitant]
     Indication: DIARRHOEA
     Dosage: 1 TEASPOON
     Route: 048
     Dates: start: 201711
  2. ALECENSA [Suspect]
     Active Substance: ALECTINIB HYDROCHLORIDE
     Indication: LUNG NEOPLASM MALIGNANT
     Route: 048
     Dates: start: 20171101
  3. COLLAGEN HYDROLYSATE [Concomitant]
     Indication: DIARRHOEA
     Dosage: 2 TEASPOONS
     Route: 048
     Dates: start: 201710
  4. FLAGYL [Concomitant]
     Active Substance: METRONIDAZOLE\METRONIDAZOLE HYDROCHLORIDE
     Indication: DIARRHOEA
     Route: 065
     Dates: start: 201710, end: 201710

REACTIONS (2)
  - Joint swelling [Not Recovered/Not Resolved]
  - Weight decreased [Recovering/Resolving]

NARRATIVE: CASE EVENT DATE: 20171101
